FAERS Safety Report 17180559 (Version 3)
Quarter: 2020Q1

REPORT INFORMATION
  Report Type: Report from Study
  Country: BE (occurrence: BE)
  Receive Date: 20191220
  Receipt Date: 20200218
  Transmission Date: 20200409
  Serious: Yes (Other)
  Sender: FDA-Public Use
  Company Number: BE-BRISTOL-MYERS SQUIBB COMPANY-BMS-2019-119557

PATIENT
  Age: 62 Year
  Sex: Female
  Weight: 63.5 kg

DRUGS (6)
  1. FUROSEMIDE. [Concomitant]
     Active Substance: FUROSEMIDE
     Indication: HYPERTENSION
     Dosage: 40 MILLIGRAM, QD
     Route: 065
     Dates: start: 2014
  2. RIVOTRIL [Concomitant]
     Active Substance: CLONAZEPAM
     Indication: ANXIETY
     Dosage: 2 MILLIGRAM, QD
     Route: 065
     Dates: start: 2012
  3. D3 VITAMIIN [Concomitant]
     Indication: OSTEOPOROSIS
     Dosage: UNK, QD
     Route: 065
     Dates: start: 201901
  4. L THYROXINE [Concomitant]
     Active Substance: LEVOTHYROXINE SODIUM
     Indication: HYPOTHYROIDISM
     Dosage: 150 MILLIGRAM
     Route: 065
     Dates: start: 2017
  5. NIVOLUMAB [Suspect]
     Active Substance: NIVOLUMAB
     Indication: MESOTHELIOMA
     Dosage: 180 MILLIGRAM, Q2WK
     Route: 042
     Dates: start: 20190222, end: 20190917
  6. DUROGESIC [Concomitant]
     Active Substance: FENTANYL
     Indication: PAIN
     Dosage: 50 MICROGRAM, Q3D
     Route: 065
     Dates: start: 201901

REACTIONS (2)
  - Intentional product use issue [Unknown]
  - Cholecystitis [Unknown]

NARRATIVE: CASE EVENT DATE: 201909
